FAERS Safety Report 14847015 (Version 1)
Quarter: 2018Q2

REPORT INFORMATION
  Report Type: Spontaneous
  Country: US (occurrence: US)
  Receive Date: 20180504
  Receipt Date: 20180504
  Transmission Date: 20180711
  Serious: Yes (Death, Other)
  Sender: FDA-Public Use
  Company Number: US-KITE, A GILEAD COMPANY-2047207

PATIENT
  Age: 65 Year

DRUGS (1)
  1. YESCARTA [Suspect]
     Active Substance: AXICABTAGENE CILOLEUCEL
     Indication: DIFFUSE LARGE B-CELL LYMPHOMA
     Dates: start: 20171219, end: 20171219

REACTIONS (3)
  - Cytokine release syndrome [Unknown]
  - Death [Fatal]
  - Neurotoxicity [Unknown]

NARRATIVE: CASE EVENT DATE: 20171230
